FAERS Safety Report 5836793-6 (Version None)
Quarter: 2008Q3

REPORT INFORMATION
  Report Type: 
  Country: None (occurrence: None)
  Receive Date: 20080806
  Receipt Date: 20080806
  Transmission Date: 20090109
  Serious: Yes (Life-Threatening, Hospitalization, Disabling, Other)
  Sender: FDA-Public Use
  Company Number: None

PATIENT
  Age: 28 Year
  Sex: Female
  Weight: 68.0396 kg

DRUGS (2)
  1. MIRENA [Suspect]
     Indication: CONTRACEPTION
     Dates: start: 20080714, end: 20080719
  2. MIRENA [Suspect]
     Indication: DYSMENORRHOEA

REACTIONS (19)
  - ABDOMINAL PAIN [None]
  - ACNE [None]
  - ANXIETY [None]
  - BLOOD PRESSURE INCREASED [None]
  - BODY TEMPERATURE INCREASED [None]
  - FEAR [None]
  - FEAR OF DEATH [None]
  - FEELING ABNORMAL [None]
  - HYPOVENTILATION [None]
  - INFECTION [None]
  - INSOMNIA [None]
  - NAUSEA [None]
  - OEDEMA PERIPHERAL [None]
  - OVARIAN CYST [None]
  - PALPITATIONS [None]
  - PANIC ATTACK [None]
  - PULMONARY EMBOLISM [None]
  - SOMNOLENCE [None]
  - UPPER RESPIRATORY TRACT INFECTION [None]
